FAERS Safety Report 15965118 (Version 1)
Quarter: 2019Q1

REPORT INFORMATION
  Report Type: Spontaneous
  Country: US (occurrence: US)
  Receive Date: 20190215
  Receipt Date: 20190215
  Transmission Date: 20190418
  Serious: No
  Sender: FDA-Public Use
  Company Number: US-ASTRAZENECA-2019SE12523

PATIENT

DRUGS (1)
  1. CRESTOR [Suspect]
     Active Substance: ROSUVASTATIN CALCIUM
     Dosage: 40 MG
     Route: 048

REACTIONS (5)
  - Fatigue [Recovering/Resolving]
  - Intentional product misuse [Unknown]
  - Myalgia [Recovering/Resolving]
  - Chromaturia [Recovering/Resolving]
  - Diabetes mellitus [Recovering/Resolving]
